FAERS Safety Report 9300555 (Version 2)
Quarter: 2013Q2

REPORT INFORMATION
  Report Type: Spontaneous
  Country: US (occurrence: US)
  Receive Date: 20130521
  Receipt Date: 20130624
  Transmission Date: 20140414
  Serious: Yes (Hospitalization, Other)
  Sender: FDA-Public Use
  Company Number: US-PFIZER INC-2013150664

PATIENT
  Age: 60 Year
  Sex: Female
  Weight: 55.33 kg

DRUGS (2)
  1. XALATAN [Suspect]
     Indication: GLAUCOMA
     Dosage: ONE DROP IN EACH EYE, 1X/DAY
     Route: 047
     Dates: start: 2005
  2. AZOPT [Concomitant]
     Indication: GLAUCOMA
     Dosage: UNK
     Route: 047

REACTIONS (3)
  - Convulsion [Recovered/Resolved]
  - Blood potassium decreased [Unknown]
  - Dysarthria [Recovered/Resolved]
